FAERS Safety Report 5093949-0 (Version None)
Quarter: 2006Q3

REPORT INFORMATION
  Report Type: 
  Country: None (occurrence: None)
  Receive Date: 20060831
  Receipt Date: 20060821
  Transmission Date: 20061208
  Serious: Yes (Other)
  Sender: FDA-Public Use
  Company Number: 2006GB01483

PATIENT
  Age: 89 Year
  Sex: Male
  Weight: 80 kg

DRUGS (5)
  1. MEROPENEM [Suspect]
     Indication: SEPSIS
     Route: 042
     Dates: start: 20060706, end: 20060701
  2. OMEPRAZOLE [Concomitant]
     Route: 048
  3. ACETAMINOPHEN [Concomitant]
     Route: 048
  4. ALBUTEROL SPIROS [Concomitant]
     Route: 055
  5. THIAMINE [Concomitant]
     Route: 048

REACTIONS (3)
  - MOUTH ULCERATION [None]
  - RENAL FAILURE [None]
  - STEVENS-JOHNSON SYNDROME [None]
